FAERS Safety Report 7345683-1 (Version None)
Quarter: 2011Q1

REPORT INFORMATION
  Report Type: 
  Country: None (occurrence: None)
  Receive Date: 20110310
  Receipt Date: 20110303
  Transmission Date: 20110831
  Serious: Yes (Death)
  Sender: FDA-Public Use
  Company Number: B0704380A

PATIENT
  Sex: Male
  Weight: 94 kg

DRUGS (14)
  1. NOVANTRONE [Concomitant]
     Indication: STEM CELL TRANSPLANT
     Dosage: 40MG PER DAY
     Route: 042
     Dates: start: 20051007, end: 20051009
  2. ISCOTIN [Concomitant]
     Dosage: 300MG PER DAY
     Route: 048
     Dates: start: 20051007, end: 20051012
  3. DECADRON [Concomitant]
     Indication: STEM CELL TRANSPLANT
     Dosage: 20MG PER DAY
     Dates: start: 20051007, end: 20051010
  4. DIFLUCAN [Concomitant]
     Dosage: 200MG PER DAY
     Route: 048
     Dates: start: 20051007, end: 20051012
  5. ZOVIRAX [Concomitant]
     Dosage: 1000MG PER DAY
     Route: 048
     Dates: start: 20051007, end: 20051012
  6. ETOPOSIDE [Concomitant]
     Indication: STEM CELL TRANSPLANT
     Dosage: 200MG PER DAY
     Route: 042
     Dates: start: 20051007, end: 20051009
  7. KYTRIL [Concomitant]
     Dosage: 3MG PER DAY
     Dates: start: 20051007, end: 20051010
  8. CRAVIT [Concomitant]
     Dosage: 300MG PER DAY
     Route: 048
     Dates: start: 20051007, end: 20051012
  9. GLUCOSE [Concomitant]
     Dosage: 3IUAX PER DAY
     Dates: start: 20051007, end: 20051011
  10. KAYTWO N [Concomitant]
     Dosage: 1IUAX PER DAY
     Route: 042
     Dates: start: 20051008, end: 20051010
  11. ALKERAN [Suspect]
     Indication: STEM CELL TRANSPLANT
     Dosage: 290MG PER DAY
     Route: 042
     Dates: start: 20051010, end: 20051010
  12. ZYLORIC [Concomitant]
     Dosage: 300MG PER DAY
     Route: 048
     Dates: start: 20051007, end: 20051012
  13. NEUTROGIN [Concomitant]
     Dosage: 250MCG PER DAY
     Dates: start: 20051012, end: 20051012
  14. ORGARAN [Concomitant]
     Dosage: 1250IU PER DAY
     Route: 042
     Dates: start: 20051007, end: 20051012

REACTIONS (1)
  - SEPTIC SHOCK [None]
